FAERS Safety Report 6370138-0 (Version None)
Quarter: 2009Q3

REPORT INFORMATION
  Report Type: 
  Country: None (occurrence: None)
  Receive Date: 20090923
  Receipt Date: 20070917
  Transmission Date: 20100115
  Serious: Yes (Other)
  Sender: FDA-Public Use
  Company Number: US-ASTRAZENECA-2006UW21421

PATIENT
  Age: 32 Year
  Sex: Female
  Weight: 144.7 kg

DRUGS (33)
  1. SEROQUEL [Suspect]
     Indication: DEPRESSION
     Route: 048
     Dates: start: 20000101, end: 20050101
  2. SEROQUEL [Suspect]
     Dosage: 25-50 MG
     Route: 048
     Dates: start: 20020510
  3. ABILIFY [Concomitant]
  4. CLOZARIL [Concomitant]
  5. ZYPREXA [Concomitant]
  6. LORAZEPAM [Concomitant]
     Dosage: 1-2 MG
     Route: 048
  7. PROMETHAZINE HCL [Concomitant]
     Dosage: 25-150 MG
     Route: 048
  8. SINGULAIR [Concomitant]
     Route: 048
  9. AMBIEN [Concomitant]
     Route: 048
  10. PRILOSEC [Concomitant]
     Dosage: 20-40 MG
     Route: 048
  11. DIAZEPAM [Concomitant]
     Route: 048
  12. ACTOS [Concomitant]
     Dosage: 15-45 MG
     Route: 048
  13. SIMVASTATIN [Concomitant]
     Route: 048
  14. FLEXERIL [Concomitant]
     Route: 048
  15. METFORMIN HCL [Concomitant]
     Route: 048
  16. TRAMADOL HCL [Concomitant]
     Dosage: 100-400 MG
     Route: 048
  17. SYNTHROID [Concomitant]
     Dosage: 112-175 MG
     Route: 048
  18. EFFEXOR [Concomitant]
     Route: 048
  19. ZEBETA [Concomitant]
     Route: 048
  20. XENICAL [Concomitant]
     Route: 048
  21. WELLBUTRIN [Concomitant]
     Route: 048
  22. ALLEGRA [Concomitant]
     Route: 048
  23. FUROSEMIDE [Concomitant]
     Dosage: 20-40 MG
     Route: 048
  24. PLAVIX [Concomitant]
     Route: 048
  25. DIGOXIN [Concomitant]
     Route: 048
  26. NITROGLYCERIN [Concomitant]
     Route: 048
  27. ZOLPIDEM [Concomitant]
     Route: 048
  28. CITALOPRAM HYDROBROMIDE [Concomitant]
     Route: 048
  29. LISINOPRIL [Concomitant]
     Route: 048
  30. AMLODIPINE BESYLATE [Concomitant]
     Route: 048
  31. JANUVIA [Concomitant]
     Indication: DIABETES MELLITUS
     Route: 048
  32. PAXIL [Concomitant]
     Route: 048
  33. IBUPROFEN [Concomitant]
     Route: 048

REACTIONS (2)
  - CEREBROVASCULAR ACCIDENT [None]
  - DIABETES MELLITUS [None]
